FAERS Safety Report 6126778-7 (Version None)
Quarter: 2009Q1

REPORT INFORMATION
  Report Type: 
  Country: None (occurrence: None)
  Receive Date: 20090320
  Receipt Date: 20090306
  Transmission Date: 20090719
  Serious: Yes (Life-Threatening)
  Sender: FDA-Public Use
  Company Number: GB-PFIZER INC-2009181999

PATIENT

DRUGS (14)
  1. CHAMPIX [Suspect]
     Route: 048
     Dates: start: 20090118, end: 20090124
  2. ACRIVASTINE [Concomitant]
  3. BECLOMETHASONE DIPROPIONATE [Concomitant]
  4. DICLOFENAC [Concomitant]
  5. DOXAZOSIN MESILATE [Concomitant]
  6. FOLIC ACID [Concomitant]
  7. FUROSEMIDE [Concomitant]
  8. METHOTREXATE SODIUM [Concomitant]
  9. NULYTELY [Concomitant]
  10. OMEPRAZOLE [Concomitant]
  11. PARACETAMOL [Concomitant]
  12. SALBUTAMOL SULFATE [Concomitant]
  13. VALSARTAN [Concomitant]
  14. VITAMIN B-12 [Concomitant]

REACTIONS (4)
  - DEHYDRATION [None]
  - NAUSEA [None]
  - RENAL FAILURE ACUTE [None]
  - VOMITING [None]
